FAERS Safety Report 19460502 (Version 17)
Quarter: 2022Q1

REPORT INFORMATION
  Report Type: Other
  Country: GB (occurrence: GB)
  Receive Date: 20210625
  Receipt Date: 20220116
  Transmission Date: 20220424
  Serious: Yes (Hospitalization, Disabling, Other)
  Sender: FDA-Public Use
  Company Number: None

PATIENT
  Age: 8 Year
  Sex: Female
  Weight: 23.35 kg

DRUGS (51)
  1. RANITIDINE [Suspect]
     Active Substance: RANITIDINE
     Indication: Gastrooesophageal reflux disease
     Dosage: UNK, ONE PER DAY
     Route: 048
  2. RANITIDINE [Suspect]
     Active Substance: RANITIDINE
     Dosage: UNK, 1 DAY
     Route: 048
  3. RANITIDINE [Suspect]
     Active Substance: RANITIDINE
     Dosage: 50 MILLIGRAM, EVERY 12 HRS
     Route: 048
     Dates: start: 20191018
  4. RANITIDINE [Suspect]
     Active Substance: RANITIDINE
     Dosage: 50 MILLIGRAM, BID
     Route: 065
     Dates: start: 20191018
  5. LOPERAMIDE [Suspect]
     Active Substance: LOPERAMIDE
     Indication: Diarrhoea
     Dosage: 2 MILLIGRAM, QID  CAPSULE, 2 MG ONE CAPSULE UP TO FOUR TIMES A DAY
     Route: 065
  6. LOPERAMIDE [Suspect]
     Active Substance: LOPERAMIDE
     Dosage: UNK
     Route: 065
  7. LANSOPRAZOLE [Suspect]
     Active Substance: LANSOPRAZOLE
     Indication: Product used for unknown indication
     Dosage: UNK
     Route: 065
  8. AFINITOR [Suspect]
     Active Substance: EVEROLIMUS
     Indication: Brain stem glioma
     Dosage: 5 MILLIGRAM, DAILY 5MG MONDAY/WEDNESDAY/FRIDAY
     Route: 048
  9. AFINITOR [Suspect]
     Active Substance: EVEROLIMUS
     Dosage: 5 MILLIGRAM (MONDAY/WEDNESDAY/FRIDAY)
     Route: 048
     Dates: start: 20190717, end: 20200207
  10. AFINITOR [Suspect]
     Active Substance: EVEROLIMUS
     Dosage: 5 MILLIGRAM, QD, MONDAY/WEDNESDAY/FRIDAYAND 2.5 MG TUESDAY/THURSDAY/SATURDAY/SUNDAY
     Route: 048
     Dates: start: 20200212
  11. AFINITOR [Suspect]
     Active Substance: EVEROLIMUS
     Dosage: 2.5 MILLIGRAM, QD (TUESDAY/THURSDAY/SATURDAY/SUNDAY)
     Route: 048
     Dates: start: 20200212
  12. AFINITOR [Suspect]
     Active Substance: EVEROLIMUS
     Dosage: 5 MILLIGRAM, QD MONDAY/WEDNESDAY/FRIDAY (318 MG)
     Route: 048
     Dates: start: 20210207
  13. AFINITOR [Suspect]
     Active Substance: EVEROLIMUS
     Dosage: 2.5 MILLIGRAM, QD
     Route: 048
     Dates: start: 20210207
  14. AFINITOR [Suspect]
     Active Substance: EVEROLIMUS
     Dosage: 5 MILLIGRAM ON MONDAY, WEDNESDAY AND FRIDAY
     Route: 048
     Dates: start: 20191001
  15. AFINITOR [Suspect]
     Active Substance: EVEROLIMUS
     Dosage: 2.5 MILLIGRAM BID 5 MG MONDAY/WEDNESDAY/FRIDAY AND 2.5 MG TUESDAY/THURSDAY/SATURDAY/SUNDAY)
     Route: 048
     Dates: start: 20200213
  16. AFINITOR [Suspect]
     Active Substance: EVEROLIMUS
     Dosage: 5 MILLIGRAM, QD
     Route: 048
     Dates: start: 20200212
  17. AFINITOR [Suspect]
     Active Substance: EVEROLIMUS
     Dosage: 25 MILLIGRAM, ONCE A WEEK, 2.5 MILLIGRAM PER DAY ON TUESDAY,THURSDAY,SATURDAY AND SUNDAY 5 MG ON MON
     Route: 048
     Dates: start: 20190717, end: 20191014
  18. AFINITOR [Suspect]
     Active Substance: EVEROLIMUS
     Dosage: 2.5 MILLIGRAM, QD (CUMULATIVE DOSE 318 MILLIGRAM)
     Route: 048
     Dates: start: 20210207
  19. AFINITOR [Suspect]
     Active Substance: EVEROLIMUS
     Dosage: 2.5 MILLIGRAM, 5 MG MONDAY/WEDNESDAY/FRIDAY AND 2.5 MG TUESDAY/THURSDAY/SATURDAY/SUNDAY
     Route: 048
  20. AFINITOR [Suspect]
     Active Substance: EVEROLIMUS
     Dosage: 2.5 MG, ON TUESDAY, THURSDAY, SATURDAY AND SUNDAY
     Route: 048
     Dates: start: 20190718, end: 20200207
  21. AFINITOR [Suspect]
     Active Substance: EVEROLIMUS
     Dosage: 2.5 MILLIGRAM, QD (TUESDAY/THURSDAY/SATURDAY/SUNDAY)
     Route: 065
     Dates: start: 20200212
  22. AFINITOR [Suspect]
     Active Substance: EVEROLIMUS
     Dosage: 2.5 MILLIGRAM, 7 DAY
     Route: 048
     Dates: start: 20190717, end: 20191014
  23. AFINITOR [Suspect]
     Active Substance: EVEROLIMUS
     Dosage: 2.5 MILLIGRAM (TUESDAY/THURSDAY/SATURDAY/SUNDAY)
     Route: 048
     Dates: start: 20190717, end: 20200207
  24. AFINITOR [Suspect]
     Active Substance: EVEROLIMUS
     Dosage: UNK, 5 MG ON MONDAY, WEDNESDAY AND FRIDAY AND 2.5 MG ON TUESDAY, THURSDAY, SATURDAY AND
     Route: 048
     Dates: start: 20191001
  25. DEXAMETHASONE [Suspect]
     Active Substance: DEXAMETHASONE
     Indication: Product used for unknown indication
     Dosage: UNK ORAL SOLUTIONS
     Route: 048
  26. DEXAMETHASONE [Suspect]
     Active Substance: DEXAMETHASONE
     Dosage: 4 MILLIGRAM, BID 4MG BD WEANED TO 0.5MG SECOND DAILY
     Route: 048
     Dates: start: 20191101, end: 20200221
  27. DEXAMETHASONE [Suspect]
     Active Substance: DEXAMETHASONE
     Dosage: 9.2 MILLIGRAM, QD (4.6 MG) ORAL SOLUTIONS
     Route: 048
     Dates: start: 20200207, end: 20200221
  28. DEXAMETHASONE [Suspect]
     Active Substance: DEXAMETHASONE
     Dosage: 7 MILLIGRAM, QD (3.5 MG BID)
     Route: 048
     Dates: start: 20200210
  29. DEXAMETHASONE [Suspect]
     Active Substance: DEXAMETHASONE
     Dosage: 3.5 MILLIGRAM, QD ORAL SOLUTIONS
     Route: 048
     Dates: start: 20200212
  30. DEXAMETHASONE [Suspect]
     Active Substance: DEXAMETHASONE
     Dosage: 1.6 MILLIGRAM, QD
     Route: 048
     Dates: start: 20200215, end: 20200221
  31. DEXAMETHASONE [Suspect]
     Active Substance: DEXAMETHASONE
     Dosage: 3.5 MILLIGRAM, BID
     Route: 048
     Dates: start: 20210210
  32. DEXAMETHASONE [Suspect]
     Active Substance: DEXAMETHASONE
     Dosage: UNK
     Route: 065
  33. DEXAMETHASONE [Suspect]
     Active Substance: DEXAMETHASONE
     Dosage: 0.5 MILLIGRAM
     Route: 065
  34. DEXAMETHASONE [Suspect]
     Active Substance: DEXAMETHASONE
     Dosage: 3.5 MILLIGRAM, BID
     Route: 048
     Dates: start: 20200210
  35. DEXAMETHASONE [Suspect]
     Active Substance: DEXAMETHASONE
     Dosage: 1.6 MILLIGRAM PER DAY
     Route: 048
     Dates: start: 20210215, end: 20210221
  36. DEXAMETHASONE [Suspect]
     Active Substance: DEXAMETHASONE
     Dosage: 4 MILLIGRAM, BID
     Route: 065
     Dates: start: 20191101, end: 20200221
  37. ACETAMINOPHEN [Suspect]
     Active Substance: ACETAMINOPHEN
     Indication: Product used for unknown indication
     Dosage: 1 DOSAGE FORM, PER DAY  PM
     Route: 048
  38. VANDETANIB [Suspect]
     Active Substance: VANDETANIB
     Indication: Brain stem glioma
     Dosage: 100 MILLIGRAM, QOD
     Route: 048
  39. VANDETANIB [Suspect]
     Active Substance: VANDETANIB
     Dosage: 100 MILLIGRAM 2 DAYS
     Route: 048
     Dates: start: 20191009, end: 20191014
  40. VANDETANIB [Suspect]
     Active Substance: VANDETANIB
     Dosage: 100 MILLIGRAM, QD 65 MILLIGRAM/SQ. METER
     Route: 048
     Dates: start: 20191009, end: 20191014
  41. VANDETANIB [Suspect]
     Active Substance: VANDETANIB
     Dosage: 100 MILLIGRAM, (QOD 65 MG/M2)
     Route: 048
     Dates: start: 20191018, end: 20200207
  42. VANDETANIB [Suspect]
     Active Substance: VANDETANIB
     Dosage: 100 MILLIGRAM, QD ,(54MG/METER SQUARE)
     Route: 048
     Dates: start: 20200212, end: 20200302
  43. VANDETANIB [Suspect]
     Active Substance: VANDETANIB
     Dosage: 65 MILLIGRAM/SQ. METER, QD
     Route: 048
     Dates: start: 20200316, end: 20200420
  44. VANDETANIB [Suspect]
     Active Substance: VANDETANIB
     Dosage: 54 MILLIGRAM/SQ. METER
     Route: 048
     Dates: start: 20200212, end: 20200302
  45. VANDETANIB [Suspect]
     Active Substance: VANDETANIB
     Dosage: 54 MILLIGRAM/SQ. METER, PER DAY
     Route: 065
     Dates: start: 20200212, end: 20200302
  46. VANDETANIB [Suspect]
     Active Substance: VANDETANIB
     Dosage: 100 MILLIGRAM, (QOD 65 MG/M2)
     Route: 048
     Dates: start: 20191018, end: 20200207
  47. COTRIMOXAZOLE [Concomitant]
     Active Substance: SULFAMETHOXAZOLE\TRIMETHOPRIM
     Indication: Product used for unknown indication
     Dosage: 360 MILLIGRAM, BID (7.5 ML) ON SATURDAYS)
     Route: 048
  48. COTRIMOXAZOLE [Concomitant]
     Active Substance: SULFAMETHOXAZOLE\TRIMETHOPRIM
     Dosage: UNK
     Route: 065
  49. COTRIMOXAZOLE [Concomitant]
     Active Substance: SULFAMETHOXAZOLE\TRIMETHOPRIM
     Dosage: UNK
     Route: 065
  50. COTRIMOXAZOLE [Concomitant]
     Active Substance: SULFAMETHOXAZOLE\TRIMETHOPRIM
     Dosage: 360 MILLIGRAM, BID, ON SAT/SUN ONLY
     Route: 048
  51. COTRIMOXAZOLE [Concomitant]
     Active Substance: SULFAMETHOXAZOLE\TRIMETHOPRIM
     Dosage: 360 MILLIGRAM, BID, ON SAT/SUN ONLY
     Route: 048

REACTIONS (34)
  - Facial paralysis [Recovered/Resolved]
  - Facial paralysis [Recovered/Resolved]
  - Facial paralysis [Recovered/Resolved]
  - Ataxia [Recovered/Resolved]
  - Hemiparesis [Recovered/Resolved]
  - Electrocardiogram QT prolonged [Recovered/Resolved]
  - Disease progression [Unknown]
  - Hypertension [Not Recovered/Not Resolved]
  - Brain stem glioma [Unknown]
  - Ataxia [Recovered/Resolved]
  - Malignant neoplasm progression [Unknown]
  - Blood cholesterol increased [Recovered/Resolved]
  - Reflux gastritis [Recovered/Resolved]
  - Ocular hyperaemia [Recovered/Resolved]
  - Alanine aminotransferase increased [Recovered/Resolved]
  - Hypophosphataemia [Recovered/Resolved]
  - White blood cell count decreased [Not Recovered/Not Resolved]
  - Lymphocyte count decreased [Not Recovered/Not Resolved]
  - Neutrophil count decreased [Recovered/Resolved]
  - Myoclonus [Recovered/Resolved]
  - Stomatitis [Recovered/Resolved]
  - Blood cholesterol increased [Not Recovered/Not Resolved]
  - Blood triglycerides increased [Unknown]
  - Hypophagia [Not Recovered/Not Resolved]
  - Neutrophil count decreased [Recovered/Resolved]
  - Blood creatinine increased [Recovered/Resolved]
  - Hemiparesis [Recovered/Resolved]
  - Gastrooesophageal reflux disease [Recovered/Resolved]
  - Blood cholesterol increased [Not Recovered/Not Resolved]
  - Flatulence [Recovered/Resolved]
  - Abdominal distension [Recovered/Resolved]
  - Blood creatinine increased [Unknown]
  - Brain stem glioma [Not Recovered/Not Resolved]
  - Medication error [Unknown]
